FAERS Safety Report 22086056 (Version 1)
Quarter: 2023Q1

REPORT INFORMATION
  Report Type: Spontaneous
  Country: None (occurrence: CA)
  Receive Date: 20230310
  Receipt Date: 20230310
  Transmission Date: 20230418
  Serious: Yes (Hospitalization)
  Sender: FDA-Public Use
  Company Number: CA-B.Braun Medical Inc.-2138927

PATIENT
  Age: 35 Year
  Sex: Female

DRUGS (10)
  1. ACETAMINOPHEN [Suspect]
     Active Substance: ACETAMINOPHEN
     Indication: Pyrexia
     Route: 048
  2. DIMENHYDRINATE [Suspect]
     Active Substance: DIMENHYDRINATE
  3. DOXYLAMINE SUCCINATE\PYRIDOXINE HYDROCHLORIDE [Suspect]
     Active Substance: DOXYLAMINE SUCCINATE\PYRIDOXINE HYDROCHLORIDE
  4. FAMOTIDINE [Suspect]
     Active Substance: FAMOTIDINE
  5. PROCHLORPERAZINE [Suspect]
     Active Substance: PROCHLORPERAZINE
  6. LORAZEPAM [Suspect]
     Active Substance: LORAZEPAM
  7. SODIUM BICARBONATE [Suspect]
     Active Substance: SODIUM BICARBONATE
  8. SUMATRIPTAN [Suspect]
     Active Substance: SUMATRIPTAN
  9. DEXTROSE [Concomitant]
     Active Substance: DEXTROSE
  10. ONDANSETRON [Suspect]
     Active Substance: ONDANSETRON

REACTIONS (3)
  - Drug ineffective [Recovered/Resolved]
  - Maternal exposure during pregnancy [Recovered/Resolved]
  - Serotonin syndrome [Recovered/Resolved]
